FAERS Safety Report 10957493 (Version 1)
Quarter: 2015Q1

REPORT INFORMATION
  Report Type: Spontaneous
  Country: DK (occurrence: DK)
  Receive Date: 20150326
  Receipt Date: 20150326
  Transmission Date: 20150721
  Serious: Yes (Death, Hospitalization)
  Sender: FDA-Public Use
  Company Number: DK-JNJFOC-20150308694

PATIENT
  Age: 59 Year
  Sex: Male

DRUGS (15)
  1. MABLET [Concomitant]
     Indication: MINERAL SUPPLEMENTATION
     Route: 065
     Dates: start: 20150119
  2. SERTRALINE [Concomitant]
     Active Substance: SERTRALINE HYDROCHLORIDE
     Indication: DEPRESSION
     Route: 065
     Dates: start: 20141201
  3. DIPROSALIC [Concomitant]
     Active Substance: BETAMETHASONE DIPROPIONATE
     Indication: PSORIASIS
     Route: 065
     Dates: start: 20131021
  4. SPIRIX [Concomitant]
     Active Substance: SPIRONOLACTONE
     Indication: DIURETIC THERAPY
     Route: 065
     Dates: start: 20150203
  5. KALEORID [Concomitant]
     Active Substance: POTASSIUM CHLORIDE
     Indication: MINERAL SUPPLEMENTATION
     Route: 065
     Dates: start: 20150203
  6. STELARA [Suspect]
     Active Substance: USTEKINUMAB
     Indication: PSORIASIS
     Route: 058
     Dates: start: 20140129
  7. APOVIT, NOS [Concomitant]
     Route: 065
  8. ENACODAN [Concomitant]
     Indication: HYPERTENSION
     Route: 065
     Dates: start: 20130625
  9. EMPERAL [Concomitant]
     Active Substance: METOCLOPRAMIDE HYDROCHLORIDE
     Indication: NAUSEA
     Route: 065
     Dates: start: 20150119
  10. VITAMIN D3 [Concomitant]
     Active Substance: CHOLECALCIFEROL
     Indication: VITAMIN D DEFICIENCY
     Route: 065
     Dates: start: 20130628
  11. MEDILAX [Concomitant]
     Indication: CONSTIPATION
     Route: 065
     Dates: start: 20150101
  12. STELARA [Suspect]
     Active Substance: USTEKINUMAB
     Indication: PSORIASIS
     Route: 058
     Dates: end: 20150211
  13. THIAMINE [Concomitant]
     Active Substance: THIAMINE
     Indication: VITAMIN B1 DEFICIENCY
     Route: 065
     Dates: start: 20150119
  14. ANTABUSE [Concomitant]
     Active Substance: DISULFIRAM
     Indication: ALCOHOLISM
     Route: 065
     Dates: start: 20141201
  15. PANTOPRAZOLE [Concomitant]
     Active Substance: PANTOPRAZOLE SODIUM
     Indication: GASTRIC ULCER
     Route: 065
     Dates: start: 20150114

REACTIONS (8)
  - Hepatic encephalopathy [Unknown]
  - Fall [Unknown]
  - Peritonitis bacterial [Unknown]
  - Haemoglobin decreased [Not Recovered/Not Resolved]
  - Hepatic cirrhosis [Unknown]
  - Gastrointestinal perforation [Unknown]
  - Septic shock [Fatal]
  - Helicobacter gastritis [Unknown]

NARRATIVE: CASE EVENT DATE: 20141231
